FAERS Safety Report 17242489 (Version 2)
Quarter: 2020Q1

REPORT INFORMATION
  Report Type: Report from Study
  Country: US (occurrence: US)
  Receive Date: 20200107
  Receipt Date: 20200115
  Transmission Date: 20200409
  Serious: No
  Sender: FDA-Public Use
  Company Number: US-SA-2019SA360500

PATIENT
  Age: 59 Year
  Sex: Female

DRUGS (3)
  1. TETRACYCLINE HYDROCHLORIDE. [Suspect]
     Active Substance: TETRACYCLINE HYDROCHLORIDE
  2. SARILUMAB [Suspect]
     Active Substance: SARILUMAB
     Indication: RHEUMATOID ARTHRITIS
     Dosage: 200 MG, QOW
     Route: 058
     Dates: start: 20180701, end: 2019
  3. SARILUMAB [Suspect]
     Active Substance: SARILUMAB
     Dosage: 200 MG, QOW
     Route: 058
     Dates: start: 2019

REACTIONS (13)
  - Nasopharyngitis [Unknown]
  - Eye pruritus [Unknown]
  - Bronchitis [Unknown]
  - Urticaria [Recovered/Resolved]
  - Eye pain [Unknown]
  - Pain [Unknown]
  - Dry eye [Unknown]
  - Influenza [Unknown]
  - Eye infection [Unknown]
  - Scab [Unknown]
  - Hypersensitivity [Unknown]
  - White blood cell count decreased [Unknown]
  - Periorbital oedema [Unknown]

NARRATIVE: CASE EVENT DATE: 2019
